FAERS Safety Report 16995256 (Version 3)
Quarter: 2019Q4

REPORT INFORMATION
  Report Type: Spontaneous
  Country: BR (occurrence: BR)
  Receive Date: 20191105
  Receipt Date: 20191113
  Transmission Date: 20200122
  Serious: Yes (Hospitalization, Disabling, Other)
  Sender: FDA-Public Use
  Company Number: BR-SA-2019SA303302

PATIENT
  Sex: Male

DRUGS (1)
  1. LEMTRADA [Suspect]
     Active Substance: ALEMTUZUMAB
     Dosage: UNK
     Route: 041

REACTIONS (8)
  - Mobility decreased [Unknown]
  - Hypertension [Recovering/Resolving]
  - Product administration error [Unknown]
  - Cyanosis [Unknown]
  - Depressed level of consciousness [Unknown]
  - Coma [Recovering/Resolving]
  - Aphonia [Unknown]
  - Feeling abnormal [Unknown]
